FAERS Safety Report 7658986-8 (Version None)
Quarter: 2011Q3

REPORT INFORMATION
  Report Type: 
  Country: None (occurrence: None)
  Receive Date: 20110805
  Receipt Date: 20110725
  Transmission Date: 20111222
  Serious: Yes (Other)
  Sender: FDA-Public Use
  Company Number: CA-ELI_LILLY_AND_COMPANY-CA201107006465

PATIENT
  Sex: Female

DRUGS (5)
  1. IMOVANE [Concomitant]
  2. ZYPREXA [Suspect]
     Dosage: 10 MG, QD
  3. SERAX [Concomitant]
  4. CLONAZEPAM [Concomitant]
  5. ZYPREXA [Suspect]
     Indication: SCHIZOPHRENIA
     Dosage: 20 MG, QD
     Dates: start: 20020501

REACTIONS (7)
  - OEDEMA PERIPHERAL [None]
  - CHEST PAIN [None]
  - DIABETES MELLITUS [None]
  - RASH [None]
  - GLAUCOMA [None]
  - PAIN IN EXTREMITY [None]
  - WEIGHT INCREASED [None]
